FAERS Safety Report 24107358 (Version 1)
Quarter: 2024Q3

REPORT INFORMATION
  Report Type: Spontaneous
  Country: US (occurrence: US)
  Receive Date: 20240718
  Receipt Date: 20240718
  Transmission Date: 20241016
  Serious: No
  Sender: AVERITAS
  Company Number: US-GRUNENTHAL-2023-295903

PATIENT
  Age: 72 Year
  Sex: Female

DRUGS (2)
  1. QUTENZA [Suspect]
     Active Substance: CAPSAICIN
     Indication: Neuropathy peripheral
     Dosage: 1 DOSAGE FORM, ONCE
     Route: 065
     Dates: start: 20231030, end: 20231030
  2. GABAPENTIN [Concomitant]
     Active Substance: GABAPENTIN
     Indication: Product used for unknown indication
     Dosage: UNK
     Route: 065

REACTIONS (19)
  - Application site pain [Unknown]
  - Application site pain [Unknown]
  - Dyspnoea [Unknown]
  - Eye pain [Unknown]
  - Cough [Unknown]
  - Poor quality sleep [Unknown]
  - Scar pain [Unknown]
  - Peripheral swelling [Unknown]
  - Lymphoedema [Unknown]
  - Swelling [Unknown]
  - Axillary pain [Unknown]
  - Palpitations [Unknown]
  - Wrong technique in product usage process [Unknown]
  - Application site discomfort [Unknown]
  - Arthralgia [Unknown]
  - Constipation [Unknown]
  - Paralysis [Unknown]
  - Musculoskeletal stiffness [Unknown]
  - Dyspnoea [Unknown]
